FAERS Safety Report 18411490 (Version 2)
Quarter: 2020Q4

REPORT INFORMATION
  Report Type: Spontaneous
  Country: US (occurrence: US)
  Receive Date: 20201021
  Receipt Date: 20201029
  Transmission Date: 20210114
  Serious: No
  Sender: FDA-Public Use
  Company Number: US-TEVA-2020-US-1839754

PATIENT
  Sex: Female

DRUGS (2)
  1. NEFAZODONE HYDROCHLORIDE. [Suspect]
     Active Substance: NEFAZODONE HYDROCHLORIDE
     Route: 065
  2. NEFAZODONE HYDROCHLORIDE. [Suspect]
     Active Substance: NEFAZODONE HYDROCHLORIDE
     Route: 065

REACTIONS (2)
  - Illness [Unknown]
  - Wrong technique in product usage process [Unknown]
